FAERS Safety Report 14004677 (Version 4)
Quarter: 2017Q4

REPORT INFORMATION
  Report Type: Report from Study
  Country: GB (occurrence: GB)
  Receive Date: 20170922
  Receipt Date: 20171026
  Transmission Date: 20180321
  Serious: Yes (Death, Life-Threatening, Hospitalization)
  Sender: FDA-Public Use
  Company Number: GB-JNJFOC-20170914708

PATIENT
  Sex: Female
  Weight: 59.7 kg

DRUGS (15)
  1. IBRUTINIB [Suspect]
     Active Substance: IBRUTINIB
     Indication: POST TRANSPLANT LYMPHOPROLIFERATIVE DISORDER
     Route: 048
     Dates: start: 20170804, end: 20170912
  2. PREDNISOLONE. [Suspect]
     Active Substance: PREDNISOLONE
     Indication: POST TRANSPLANT LYMPHOPROLIFERATIVE DISORDER
     Dosage: FREQUENCY: OTHER
     Route: 048
     Dates: start: 20170913, end: 20170914
  3. MAGNESIUM CITRATE. [Concomitant]
     Active Substance: MAGNESIUM CITRATE
     Indication: HYPOMAGNESAEMIA
     Dosage: DOSE: 200 UNIT: 01
     Route: 065
     Dates: start: 20170825
  4. ASPIRIN. [Concomitant]
     Active Substance: ASPIRIN
     Indication: PROPHYLAXIS
     Dosage: DOSE: 75 UNITS: 01
     Route: 065
     Dates: start: 20170804
  5. ALLOPURINOL. [Concomitant]
     Active Substance: ALLOPURINOL
     Indication: PROPHYLAXIS
     Dosage: DOSE: 300 UNITS: 01
     Route: 065
     Dates: start: 20170804
  6. VINCRISTINE [Suspect]
     Active Substance: VINCRISTINE
     Indication: POST TRANSPLANT LYMPHOPROLIFERATIVE DISORDER
     Dosage: FREQUENCY: OTHER
     Route: 042
     Dates: start: 20170912, end: 20170912
  7. DOXORUBICIN [Suspect]
     Active Substance: DOXORUBICIN
     Indication: POST TRANSPLANT LYMPHOPROLIFERATIVE DISORDER
     Dosage: FREQUENCY: OTHER
     Route: 042
     Dates: start: 20170912, end: 20170912
  8. AMLODIPINE [Concomitant]
     Active Substance: AMLODIPINE BESYLATE
     Indication: PROPHYLAXIS
     Dosage: DOSE: 5 UNIT: 1
     Route: 065
     Dates: start: 2013
  9. PARACETAMOL [Concomitant]
     Active Substance: ACETAMINOPHEN
     Indication: ANALGESIC THERAPY
     Dosage: DOSE: 1 UNIT: 3
     Route: 065
     Dates: start: 20170730
  10. CYCLOPHOSPHAMIDE. [Suspect]
     Active Substance: CYCLOPHOSPHAMIDE
     Indication: POST TRANSPLANT LYMPHOPROLIFERATIVE DISORDER
     Dosage: FREQUENCY: OTHER
     Route: 042
     Dates: start: 20170912, end: 20170912
  11. LOPERAMIDE [Concomitant]
     Active Substance: LOPERAMIDE
     Indication: DIARRHOEA
     Dosage: DOSE: 2 UNIT: 01
     Route: 065
     Dates: start: 201708
  12. RITUXIMAB. [Suspect]
     Active Substance: RITUXIMAB
     Indication: POST TRANSPLANT LYMPHOPROLIFERATIVE DISORDER
     Dosage: FREQUENCY: OTHER
     Route: 042
     Dates: start: 20170804, end: 20170825
  13. COTRIMOXAZOLE [Concomitant]
     Active Substance: SULFAMETHOXAZOLE\TRIMETHOPRIM
     Indication: ANTIFUNGAL PROPHYLAXIS
     Dosage: DOSE: 480 UNIT: 01
     Route: 065
     Dates: start: 20170804
  14. TACROLIMUS. [Concomitant]
     Active Substance: TACROLIMUS
     Indication: IMMUNOSUPPRESSANT DRUG THERAPY
     Dosage: DOSE: 1 UNIT: 01
     Route: 065
     Dates: start: 2013
  15. ACICLOVIR [Concomitant]
     Active Substance: ACYCLOVIR
     Indication: ANTIVIRAL PROPHYLAXIS
     Dosage: DOSE LAST GIVEN: 400 UNIT: 01
     Route: 065
     Dates: start: 20170803

REACTIONS (2)
  - Tumour lysis syndrome [Fatal]
  - Sepsis [Fatal]

NARRATIVE: CASE EVENT DATE: 20170914
